FAERS Safety Report 7165654-8 (Version None)
Quarter: 2010Q4

REPORT INFORMATION
  Report Type: 
  Country: None (occurrence: None)
  Receive Date: 20101215
  Receipt Date: 20091229
  Transmission Date: 20110411
  Serious: No
  Sender: FDA-Public Use
  Company Number: US-AMGEN-TCS383040

PATIENT

DRUGS (11)
  1. ENBREL [Suspect]
     Indication: RHEUMATOID ARTHRITIS
     Dosage: 50 MG, QWK
     Route: 058
     Dates: start: 20090715
  2. HYDROXYCHLOROQUINE SULFATE [Concomitant]
     Dosage: 400 MG, QD
     Route: 058
  3. CELECOXIB [Concomitant]
     Dosage: 200 MG, QD
  4. PREDNISONE [Concomitant]
     Dosage: 2.5 MG, QD
  5. ACETAMINOPHEN [Concomitant]
     Dosage: UNK UNK, PRN
  6. DIGOXIN [Concomitant]
  7. TORSEMIDE [Concomitant]
  8. METOPROLOL TARTRATE [Concomitant]
  9. OMEPRAZOLE [Concomitant]
  10. VALSARTAN [Concomitant]
  11. AMLODIPINE BESYLATE [Concomitant]

REACTIONS (2)
  - DRY SKIN [None]
  - RHEUMATOID ARTHRITIS [None]
